FAERS Safety Report 4501808-4 (Version None)
Quarter: 2004Q4

REPORT INFORMATION
  Report Type: 
  Country: None (occurrence: None)
  Receive Date: 20041115
  Receipt Date: 20041115
  Transmission Date: 20050328
  Serious: Yes (Life-Threatening, Hospitalization)
  Sender: FDA-Public Use
  Company Number: None

PATIENT
  Age: 59 Year
  Sex: Male
  Weight: 91.8 kg

DRUGS (15)
  1. TACROLIMUS [Suspect]
  2. PREDNISONE [Suspect]
  3. LISINOPRIL [Concomitant]
  4. METOPROLOL [Concomitant]
  5. INSULIN 70/30 NPH/REG [Concomitant]
  6. OMEPRAZOLE [Concomitant]
  7. FLUOXETINE [Concomitant]
  8. LOPERAMIDE HCL [Concomitant]
  9. PREDNISONE [Concomitant]
  10. TACROLIMUS [Concomitant]
  11. PIOGLITAZONE HCL [Concomitant]
  12. LISINOPRIL [Concomitant]
  13. PIOGLITAZONE HCL [Concomitant]
  14. MIRTAZAPINE [Concomitant]
  15. RABEPRAZOLE SODIUM [Concomitant]

REACTIONS (2)
  - RENAL FAILURE [None]
  - RENAL FAILURE ACUTE [None]
